FAERS Safety Report 5396837-5 (Version None)
Quarter: 2007Q3

REPORT INFORMATION
  Report Type: 
  Country: None (occurrence: None)
  Receive Date: 20070725
  Receipt Date: 20060821
  Transmission Date: 20080115
  Serious: No
  Sender: FDA-Public Use
  Company Number: US-AMGEN-KDL190791

PATIENT
  Sex: Female

DRUGS (10)
  1. PROCRIT [Suspect]
     Indication: RENAL FAILURE CHRONIC
     Route: 058
     Dates: start: 20050501
  2. PROGRAF [Concomitant]
  3. PREDNISONE [Concomitant]
  4. CELLCEPT [Concomitant]
  5. LISINOPRIL [Concomitant]
  6. FOLIC ACID [Concomitant]
  7. SODIUM BICARBONATE [Concomitant]
  8. VITAMIN D [Concomitant]
  9. MYCOPHENOLIC ACID [Concomitant]
  10. TACROLIMUS [Concomitant]

REACTIONS (4)
  - HYPERPARATHYROIDISM [None]
  - IRON DEFICIENCY [None]
  - RETICULOCYTE COUNT ABNORMAL [None]
  - THERAPEUTIC RESPONSE DECREASED [None]
